FAERS Safety Report 6290322-4 (Version None)
Quarter: 2009Q3

REPORT INFORMATION
  Report Type: 
  Country: None (occurrence: None)
  Receive Date: 20090730
  Receipt Date: 20090305
  Transmission Date: 20100115
  Serious: No
  Sender: FDA-Public Use
  Company Number: US-BRISTOL-MYERS SQUIBB COMPANY-14518765

PATIENT
  Age: 86 Year
  Sex: Male

DRUGS (3)
  1. COUMADIN [Suspect]
  2. ASPIRIN [Suspect]
  3. PLAVIX [Suspect]
     Indication: COAGULOPATHY
     Route: 048

REACTIONS (1)
  - EPISTAXIS [None]
